FAERS Safety Report 8610977-6 (Version None)
Quarter: 2012Q3

REPORT INFORMATION
  Report Type: 
  Country: None (occurrence: None)
  Receive Date: 20120420
  Receipt Date: 20110627
  Transmission Date: 20120928
  Serious: Yes (Other)
  Sender: FDA-Public Use
  Company Number: WAES 1106USA03784

PATIENT
  Age: 11 Year
  Sex: Male

DRUGS (2)
  1. ALBUTEROL [Concomitant]
  2. SINGULAIR [Suspect]
     Indication: ASTHMA
     Dosage: 5 MG/DAILY/PO
     Route: 048
     Dates: start: 20100201

REACTIONS (4)
  - TERMINAL INSOMNIA [None]
  - CONVULSION [None]
  - DROOLING [None]
  - TREMOR [None]
